APPROVED DRUG PRODUCT: RENOCAL-76
Active Ingredient: DIATRIZOATE MEGLUMINE; DIATRIZOATE SODIUM
Strength: 66%;10%
Dosage Form/Route: INJECTABLE;INJECTION
Application: A089347 | Product #001
Applicant: BRACCO DIAGNOSTICS INC
Approved: Jun 1, 1988 | RLD: No | RS: No | Type: DISCN